FAERS Safety Report 5803422-7 (Version None)
Quarter: 2008Q3

REPORT INFORMATION
  Report Type: 
  Country: None (occurrence: None)
  Receive Date: 20080708
  Receipt Date: 20080626
  Transmission Date: 20090109
  Serious: Yes (Hospitalization)
  Sender: FDA-Public Use
  Company Number: FR-WYE-H04755408

PATIENT
  Sex: Male
  Weight: 80 kg

DRUGS (1)
  1. SIROLIMUS [Suspect]
     Indication: PROPHYLAXIS AGAINST TRANSPLANT REJECTION
     Route: 048
     Dates: start: 20051021

REACTIONS (3)
  - ANAEMIA OF CHRONIC DISEASE [None]
  - DIARRHOEA [None]
  - VOMITING [None]
